FAERS Safety Report 13826662 (Version 1)
Quarter: 2017Q3

REPORT INFORMATION
  Report Type: Spontaneous
  Country: US (occurrence: US)
  Receive Date: 20170802
  Receipt Date: 20170802
  Transmission Date: 20171127
  Serious: No
  Sender: FDA-Public Use
  Company Number: US-ROCHE-646058

PATIENT
  Age: 66 Year
  Sex: Female

DRUGS (3)
  1. AMBIEN [Concomitant]
     Active Substance: ZOLPIDEM TARTRATE
     Route: 065
  2. CELEBREX [Concomitant]
     Active Substance: CELECOXIB
     Route: 065
  3. BONIVA [Suspect]
     Active Substance: IBANDRONATE SODIUM
     Indication: OSTEOPENIA
     Route: 042

REACTIONS (7)
  - Pyrexia [Unknown]
  - Myalgia [Unknown]
  - Arthropathy [Unknown]
  - Arthralgia [Unknown]
  - Muscular weakness [Unknown]
  - Malaise [Unknown]
  - Pain in extremity [Unknown]
